FAERS Safety Report 8125829-8 (Version None)
Quarter: 2012Q1

REPORT INFORMATION
  Report Type: 
  Country: None (occurrence: None)
  Receive Date: 20120209
  Receipt Date: 20120127
  Transmission Date: 20120608
  Serious: Yes (Other)
  Sender: FDA-Public Use
  Company Number: IT-MYLANLABS-2012S1002314

PATIENT
  Sex: Female

DRUGS (2)
  1. PACLITAXEL [Suspect]
     Indication: BREAST CANCER
     Dosage: 90 MG/M2 ADMINISTERED ON DAYS 1, 8 AND 15, EVERY 28 DAYS
     Route: 065
  2. BEVACIZUMAB [Suspect]
     Indication: BREAST CANCER
     Dosage: 10 MG/KG ADMINISTERED ON DAYS 1 AND 15, EVERY 28 DAYS
     Route: 065

REACTIONS (2)
  - NASAL NECROSIS [None]
  - NASAL SEPTUM PERFORATION [None]
